FAERS Safety Report 19191917 (Version 1)
Quarter: 2021Q2

REPORT INFORMATION
  Report Type: Report from Study
  Country: None (occurrence: BE)
  Receive Date: 20210429
  Receipt Date: 20210429
  Transmission Date: 20210717
  Serious: Yes (Hospitalization)
  Sender: FDA-Public Use
  Company Number: BE-ABBVIE-21K-013-3881403-00

PATIENT
  Sex: Female
  Weight: 59 kg

DRUGS (11)
  1. PROLOPA [Concomitant]
     Active Substance: BENSERAZIDE\LEVODOPA
  2. DUODOPA [Suspect]
     Active Substance: CARBIDOPA\LEVODOPA
     Dosage: MD: 2.5 ML, CD: 5.0 ML/H, ED: 3.0 ML; REMAINS AT 24 HOURS, CND: 2.6 ML/H
     Route: 050
     Dates: start: 20201009, end: 20201016
  3. DUODOPA [Suspect]
     Active Substance: CARBIDOPA\LEVODOPA
     Dosage: MD: 2.0 ML, CD: 5.0 ML/H, ED: 2.0 ML; REMAINS AT 24 HOURS, CND: 2.5 ML/H
     Route: 050
     Dates: start: 20210204, end: 20210326
  4. PROLOPA [Concomitant]
     Active Substance: BENSERAZIDE\LEVODOPA
     Indication: PRODUCT USED FOR UNKNOWN INDICATION
  5. DUODOPA [Suspect]
     Active Substance: CARBIDOPA\LEVODOPA
     Dosage: MD:2.0 ML, CD: 4.9 ML/H, ED: 2.2 ML; REMAINS AT 24 HOURS, CND: 2.5 ML/H
     Route: 050
     Dates: start: 20210118, end: 20210204
  6. DUODOPA [Suspect]
     Active Substance: CARBIDOPA\LEVODOPA
     Dosage: MD: 2.5 ML, CD: 5.2 ML/H, ED: 3.0 ML; REMAINS AT 24 HOURS, CND: 2.6 ML/H
     Route: 050
     Dates: start: 20201016, end: 20201016
  7. DUODOPA [Suspect]
     Active Substance: CARBIDOPA\LEVODOPA
     Dosage: MD:1.7  ML, CD: 4.9 ML/H, ED: 1.9 ML; REMAINS AT 24 HOURS, CND: 2.5 ML/H
     Route: 050
     Dates: start: 20210326
  8. DUODOPA [Suspect]
     Active Substance: CARBIDOPA\LEVODOPA
     Dosage: MD: 2.5 ML, CD: 5.2 ML/H, ED: 3.0 ML; REMAINS AT 16 HOURS, CND: 2.6 ML/H
     Route: 050
     Dates: start: 20201016, end: 20210118
  9. STALEVO [Concomitant]
     Active Substance: CARBIDOPA\ENTACAPONE\LEVODOPA
     Indication: PRODUCT USED FOR UNKNOWN INDICATION
  10. DUODOPA [Suspect]
     Active Substance: CARBIDOPA\LEVODOPA
     Indication: PARKINSON^S DISEASE
     Route: 050
     Dates: start: 20130610, end: 20201002
  11. DUODOPA [Suspect]
     Active Substance: CARBIDOPA\LEVODOPA
     Dosage: MD: 3.0 ML, CD: 5.0  ML/H, ED: 3.0 ML; REMAINS AT 16 HOURS, CND: 2.6 ML/H
     Route: 050
     Dates: start: 20201002, end: 20201009

REACTIONS (1)
  - Cholecystectomy [Unknown]

NARRATIVE: CASE EVENT DATE: 20210427
